FAERS Safety Report 9044111 (Version 2)
Quarter: 2013Q2

REPORT INFORMATION
  Report Type: Spontaneous
  Country: BR (occurrence: BR)
  Receive Date: 20130130
  Receipt Date: 20130410
  Transmission Date: 20140414
  Serious: Yes (Death, Hospitalization, Other)
  Sender: FDA-Public Use
  Company Number: PHHY2013BR008362

PATIENT
  Sex: Female

DRUGS (5)
  1. EXELON PATCH [Suspect]
     Indication: DEMENTIA ALZHEIMER^S TYPE
     Dosage: 9.5 MG (10CM), DAILY
     Route: 062
     Dates: start: 201008, end: 2011
  2. NEOTIAPIM [Suspect]
     Indication: DEMENTIA ALZHEIMER^S TYPE
     Dosage: 3.5 DF, DAILY
     Route: 048
     Dates: end: 201301
  3. RITMONORM [Concomitant]
     Indication: ARRHYTHMIA
     Dosage: 1 DF, DAILY
     Route: 048
  4. ALOIS [Concomitant]
     Indication: DEMENTIA ALZHEIMER^S TYPE
     Dosage: 1 DF, DAILY
     Route: 048
     Dates: start: 2009, end: 20130125
  5. LORAX [Concomitant]
     Indication: SLEEP DISORDER
     Dosage: 0.5 DF, DAILY
     Route: 048
     Dates: start: 2009, end: 20130125

REACTIONS (2)
  - Dementia Alzheimer^s type [Fatal]
  - Respiratory failure [Fatal]
